FAERS Safety Report 6269374-3 (Version None)
Quarter: 2009Q3

REPORT INFORMATION
  Report Type: 
  Country: None (occurrence: None)
  Receive Date: 20090713
  Receipt Date: 20090629
  Transmission Date: 20100115
  Serious: Yes (Hospitalization)
  Sender: FDA-Public Use
  Company Number: 1000007313

PATIENT
  Age: 48 Year
  Sex: Female

DRUGS (8)
  1. ESCITALOPRAM [Suspect]
     Dosage: ORAL
     Route: 048
     Dates: start: 20070401
  2. FEMARA [Suspect]
     Dosage: (2.5 MG), ORAL
     Route: 048
     Dates: start: 20010615
  3. FEMARA [Suspect]
     Dosage: ORAL
     Route: 048
  4. TERCIAN [Suspect]
     Dosage: 50 MG (50 MG, 1 IN 1 D), ORAL
     Route: 048
     Dates: start: 20070901
  5. TERCIAN [Suspect]
     Dosage: 25 MG (25 MG, 1 IN 1 D), ORAL
     Route: 048
     Dates: end: 20070901
  6. PRAZEPAM [Suspect]
     Dosage: ORAL
     Route: 048
     Dates: start: 20030101
  7. SECTRAL [Suspect]
     Dosage: ORAL
     Route: 048
     Dates: start: 20010101
  8. SOLU-MEDROL [Concomitant]

REACTIONS (8)
  - BALANCE DISORDER [None]
  - CEREBELLAR SYNDROME [None]
  - DIZZINESS [None]
  - EYE PAIN [None]
  - RADICULITIS [None]
  - SCOTOMA [None]
  - VISION BLURRED [None]
  - VISUAL ACUITY REDUCED [None]
